FAERS Safety Report 14994499 (Version 1)
Quarter: 2018Q2

REPORT INFORMATION
  Report Type: Spontaneous
  Country: US (occurrence: US)
  Receive Date: 20180611
  Receipt Date: 20180611
  Transmission Date: 20180711
  Serious: Yes (Hospitalization)
  Sender: FDA-Public Use
  Company Number: US-BEH-2018091313

PATIENT
  Sex: Male
  Weight: 95.24 kg

DRUGS (16)
  1. ZEMAIRA [Suspect]
     Active Substance: .ALPHA.1-PROTEINASE INHIBITOR HUMAN
     Dosage: 60 MG/KG, QW
     Route: 042
     Dates: start: 20120319
  2. BREO ELLIPTA [Concomitant]
     Active Substance: FLUTICASONE FUROATE\VILANTEROL TRIFENATATE
  3. SODIUM CHLORIDE. [Concomitant]
     Active Substance: SODIUM CHLORIDE
  4. EPINEPHRINE. [Concomitant]
     Active Substance: EPINEPHRINE
  5. ANDROGEL [Concomitant]
     Active Substance: TESTOSTERONE
  6. ZEMAIRA [Suspect]
     Active Substance: .ALPHA.1-PROTEINASE INHIBITOR HUMAN
     Indication: ALPHA-1 ANTI-TRYPSIN DEFICIENCY
     Dosage: UNK
     Route: 042
  7. NAC                                /00082801/ [Concomitant]
  8. DIPHENHYDRAMINE. [Concomitant]
     Active Substance: DIPHENHYDRAMINE
  9. OXYGEN. [Concomitant]
     Active Substance: OXYGEN
  10. MUCINEX [Concomitant]
     Active Substance: GUAIFENESIN
  11. ROBITUSSIN COUGH AND CHEST CONGESTION DM [Concomitant]
     Active Substance: DEXTROMETHORPHAN HYDROBROMIDE\GUAIFENESIN
  12. PRILOSEC [Concomitant]
     Active Substance: OMEPRAZOLE MAGNESIUM
  13. ELIQUIS [Concomitant]
     Active Substance: APIXABAN
  14. ALLEGRA [Concomitant]
     Active Substance: FEXOFENADINE HYDROCHLORIDE
  15. CARTIA XT [Concomitant]
     Active Substance: DILTIAZEM HYDROCHLORIDE
  16. BENAZEPRIL [Concomitant]
     Active Substance: BENAZEPRIL HYDROCHLORIDE

REACTIONS (4)
  - Fatigue [Unknown]
  - Dyspnoea [Unknown]
  - Asthenia [Unknown]
  - Chest pain [Unknown]
